FAERS Safety Report 10084066 (Version 1)
Quarter: 2014Q2

REPORT INFORMATION
  Report Type: Report from Study
  Country: BR (occurrence: BR)
  Receive Date: 20140417
  Receipt Date: 20140417
  Transmission Date: 20141212
  Serious: Yes (Other)
  Sender: FDA-Public Use
  Company Number: PHHY2014BR045783

PATIENT
  Sex: Female
  Weight: 60 kg

DRUGS (5)
  1. RASILEZ [Suspect]
     Dosage: 0.25 DF, QD (300 MG) DAILY AT NIGHT
     Route: 048
  2. LEVEMIR [Concomitant]
     Indication: DIABETES MELLITUS
     Dosage: UNK UKN, UNK
  3. MACRODANTIN [Concomitant]
     Indication: URINARY TRACT INFECTION
     Dosage: UNK UKN, UNK
  4. CRESTOR [Concomitant]
     Indication: BLOOD CHOLESTEROL ABNORMAL
     Dosage: UNK UKN, UNK
  5. NEXIUM//ESOMEPRAZOLE MAGNESIUM [Concomitant]
     Indication: DYSPEPSIA
     Dosage: UNK UKN, UNK

REACTIONS (4)
  - Nervous system disorder [Recovering/Resolving]
  - Renal disorder [Recovering/Resolving]
  - Hypotension [Recovering/Resolving]
  - Wrong technique in drug usage process [Unknown]
